FAERS Safety Report 8555647-8 (Version None)
Quarter: 2012Q3

REPORT INFORMATION
  Report Type: 
  Country: None (occurrence: None)
  Receive Date: 20120801
  Receipt Date: 20120719
  Transmission Date: 20120928
  Serious: Yes (Other)
  Sender: FDA-Public Use
  Company Number: CA-BRISTOL-MYERS SQUIBB COMPANY-16798944

PATIENT
  Age: 59 Year
  Sex: Female

DRUGS (8)
  1. LANTUS [Concomitant]
  2. GOLD [Concomitant]
  3. PLAQUENIL [Concomitant]
  4. ORENCIA [Suspect]
     Indication: RHEUMATOID ARTHRITIS
     Dosage: 1 INFUSION 15ML OF ORENCIA
     Route: 042
     Dates: start: 20120719
  5. HUMULIN R [Concomitant]
  6. VENTOLIN [Concomitant]
  7. EFFEXOR [Concomitant]
  8. ATROVENT [Concomitant]

REACTIONS (2)
  - ATRIAL FIBRILLATION [None]
  - CHEST PAIN [None]
